FAERS Safety Report 5843733-2 (Version None)
Quarter: 2008Q3

REPORT INFORMATION
  Report Type: 
  Country: None (occurrence: None)
  Receive Date: 20080813
  Receipt Date: 20080513
  Transmission Date: 20090109
  Serious: Yes (Other)
  Sender: FDA-Public Use
  Company Number: US-BRISTOL-MYERS SQUIBB COMPANY-14190672

PATIENT

DRUGS (1)
  1. IXEMPRA KIT [Suspect]

REACTIONS (3)
  - EATING DISORDER [None]
  - PANCYTOPENIA [None]
  - STOMATITIS [None]
